FAERS Safety Report 6033304-X (Version None)
Quarter: 2009Q1

REPORT INFORMATION
  Report Type: 
  Country: None (occurrence: None)
  Receive Date: 20090109
  Receipt Date: 20090102
  Transmission Date: 20090719
  Serious: Yes (Other)
  Sender: FDA-Public Use
  Company Number: US-JNJCH-2009000102

PATIENT
  Age: 84 Year
  Sex: Female
  Weight: 68 kg

DRUGS (2)
  1. LISTERINE WHITENING QUICK DISSOLVING STRIPS [Suspect]
     Indication: DENTAL CARE
     Dosage: TEXT:ONCE DAILY X 2 DAYS AND TWICE DAILY X 1
     Route: 048
     Dates: start: 20081229, end: 20081231
  2. LEVOTHYROXINE SODIUM [Concomitant]
     Indication: THYROID DISORDER
     Dosage: TEXT:.1/10 MG 1 PER DAY
     Route: 048

REACTIONS (4)
  - BLISTER [None]
  - CAUSTIC INJURY [None]
  - EATING DISORDER [None]
  - PRODUCT QUALITY ISSUE [None]
